FAERS Safety Report 6430132-8 (Version None)
Quarter: 2009Q4

REPORT INFORMATION
  Report Type: 
  Country: None (occurrence: None)
  Receive Date: 20091104
  Receipt Date: 20091023
  Transmission Date: 20100525
  Serious: Yes (Hospitalization)
  Sender: FDA-Public Use
  Company Number: 2009AC000325

PATIENT
  Sex: Female

DRUGS (1)
  1. DIGOXIN [Suspect]
     Dosage: 0.25 MG;QD;PO
     Route: 048
     Dates: start: 20070608, end: 20070707

REACTIONS (13)
  - ASTHENIA [None]
  - ATRIAL FIBRILLATION [None]
  - BALANCE DISORDER [None]
  - CARDIAC FLUTTER [None]
  - CHEST PAIN [None]
  - DIZZINESS [None]
  - EMOTIONAL DISTRESS [None]
  - INJURY [None]
  - NAUSEA [None]
  - PALPITATIONS [None]
  - PULMONARY EMBOLISM [None]
  - RENAL FAILURE [None]
  - THERAPEUTIC AGENT TOXICITY [None]
